FAERS Safety Report 12805570 (Version 3)
Quarter: 2016Q4

REPORT INFORMATION
  Report Type: Spontaneous
  Country: DE (occurrence: DE)
  Receive Date: 20161004
  Receipt Date: 20161203
  Transmission Date: 20170207
  Serious: Yes (Other)
  Sender: FDA-Public Use
  Company Number: DE-AUROBINDO-AUR-APL-2016-12321

PATIENT
  Age: 60 Year
  Sex: Male

DRUGS (1)
  1. FLECAINIDE ACETATE AUROBINDO TABLETS 100MG [Suspect]
     Active Substance: FLECAINIDE ACETATE
     Dosage: UNK
     Route: 065
     Dates: start: 201609

REACTIONS (2)
  - Paraesthesia [Recovered/Resolved]
  - Polyneuropathy [Recovered/Resolved]

NARRATIVE: CASE EVENT DATE: 20160928
